FAERS Safety Report 9111970 (Version 1)
Quarter: 2013Q1

REPORT INFORMATION
  Report Type: Spontaneous
  Country: US (occurrence: US)
  Receive Date: 20130219
  Receipt Date: 20130219
  Transmission Date: 20140127
  Serious: No
  Sender: FDA-Public Use
  Company Number: US-BRISTOL-MYERS SQUIBB COMPANY-17051723

PATIENT
  Age: 56 Year
  Sex: Female
  Weight: 72.56 kg

DRUGS (9)
  1. ABATACEPT SUBQ INJECTION 125MG/ML [Suspect]
     Dosage: PRODUCT STRENGTH IS 125MG/ML(4PACK)
     Route: 058
  2. METHOTREXATE [Suspect]
     Dosage: TAB
  3. LODINE [Concomitant]
     Dosage: CAPS
  4. FOLIC ACID [Concomitant]
     Dosage: TAB
  5. PLAQUENIL [Concomitant]
     Dosage: TAB
  6. PRILOSEC [Concomitant]
     Dosage: CAPS
  7. EVISTA [Concomitant]
     Dosage: TAB
  8. ECONAZOLE [Concomitant]
     Dosage: 1% CREAM
  9. TRIAMCINOLONE [Concomitant]
     Dosage: CREAM 0.025%

REACTIONS (1)
  - Sinusitis [Recovering/Resolving]
